FAERS Safety Report 12414525 (Version 3)
Quarter: 2016Q2

REPORT INFORMATION
  Report Type: Spontaneous
  Country: IT (occurrence: IT)
  Receive Date: 20160528
  Receipt Date: 20160608
  Transmission Date: 20160815
  Serious: Yes (Other)
  Sender: FDA-Public Use
  Company Number: IT-ACCORD-040864

PATIENT
  Age: 74 Year
  Sex: Female
  Weight: 56 kg

DRUGS (16)
  1. PACLITAXEL/PACLITAXEL LIPOSOME [Suspect]
     Active Substance: PACLITAXEL
     Indication: OVARIAN NEOPLASM
     Dosage: CHEMOTHERAPY CYCLE SCHEDULED FOR 27-DEC-2011 WAS POSTPONED
     Route: 042
     Dates: start: 20110613
  2. IBUSTRIN [Concomitant]
     Route: 048
  3. DECADRON [Concomitant]
     Active Substance: DEXAMETHASONE
     Route: 042
  4. TRIATEC [Concomitant]
     Active Substance: RAMIPRIL
     Route: 048
  5. DICLOREUM [Concomitant]
     Active Substance: DICLOFENAC SODIUM
     Route: 048
  6. CARVEDILOL ALMUS [Concomitant]
     Route: 048
  7. PENTACOL [Concomitant]
     Active Substance: MESALAMINE
     Route: 048
  8. CARBOPLATIN. [Concomitant]
     Active Substance: CARBOPLATIN
     Indication: OVARIAN NEOPLASM
     Route: 042
     Dates: start: 20110613, end: 20111227
  9. CRESTOR [Concomitant]
     Active Substance: ROSUVASTATIN CALCIUM
     Route: 048
  10. DUROGESIC [Concomitant]
     Active Substance: FENTANYL
     Route: 062
  11. ZOFRAN [Concomitant]
     Active Substance: ONDANSETRON HYDROCHLORIDE
     Route: 042
  12. KOLIBRI [Concomitant]
     Active Substance: ACETAMINOPHEN\TRAMADOL HYDROCHLORIDE
     Route: 048
  13. MEDROL [Concomitant]
     Active Substance: METHYLPREDNISOLONE
     Route: 048
  14. PANTORC [Concomitant]
     Active Substance: PANTOPRAZOLE SODIUM
     Route: 048
  15. LORMETAZEPAM [Concomitant]
     Active Substance: LORMETAZEPAM
     Route: 048
  16. LYRICA [Concomitant]
     Active Substance: PREGABALIN
     Route: 048

REACTIONS (5)
  - Neurotoxicity [Recovering/Resolving]
  - Palpitations [Recovered/Resolved]
  - Neutropenia [Recovered/Resolved]
  - Dyspnoea [Recovered/Resolved]
  - Paraesthesia [Recovering/Resolving]

NARRATIVE: CASE EVENT DATE: 20110819
